FAERS Safety Report 5220799-4 (Version None)
Quarter: 2007Q1

REPORT INFORMATION
  Report Type: 
  Country: None (occurrence: None)
  Receive Date: 20070126
  Receipt Date: 20070116
  Transmission Date: 20070707
  Serious: Yes (Other)
  Sender: FDA-Public Use
  Company Number: PHNU2006DE02516

PATIENT
  Age: 62 Year
  Sex: Female
  Weight: 68 kg

DRUGS (2)
  1. ZOMETA [Suspect]
     Indication: OSTEOLYSIS
     Dosage: 4 MG, QMO
     Dates: start: 20050201, end: 20060101
  2. BONDRONAT [Suspect]
     Route: 065
     Dates: start: 20060101

REACTIONS (2)
  - DENTAL DISCOMFORT [None]
  - OSTEONECROSIS [None]
